FAERS Safety Report 4706019-5 (Version None)
Quarter: 2005Q2

REPORT INFORMATION
  Report Type: 
  Country: None (occurrence: None)
  Receive Date: 20050208
  Receipt Date: 20050208
  Transmission Date: 20051028
  Serious: No
  Sender: FDA-Public Use
  Company Number: None

PATIENT
  Age: 67 Year
  Sex: Female
  Weight: 69.4003 kg

DRUGS (2)
  1. ACETAMINOPHEN AND CODEINE PHOSPHATE #3 [Suspect]
     Indication: ARTHRITIS
  2. INDOMETHACIN [Suspect]

REACTIONS (6)
  - DYSPNOEA [None]
  - HYPERHIDROSIS [None]
  - NAUSEA [None]
  - PHARMACEUTICAL PRODUCT COMPLAINT [None]
  - PRURITUS [None]
  - VOMITING [None]
